FAERS Safety Report 24206903 (Version 3)
Quarter: 2025Q1

REPORT INFORMATION
  Report Type: Report from Study
  Country: US (occurrence: US)
  Receive Date: 20240813
  Receipt Date: 20250203
  Transmission Date: 20250409
  Serious: Yes (Other)
  Sender: ABBVIE
  Company Number: US-ABBVIE-5876106

PATIENT
  Sex: Female

DRUGS (1)
  1. HUMIRA [Suspect]
     Active Substance: ADALIMUMAB
     Indication: Rheumatoid arthritis
     Route: 058
     Dates: start: 20230701

REACTIONS (15)
  - Hepatic fibrosis [Unknown]
  - Helicobacter infection [Unknown]
  - Sleep apnoea syndrome [Unknown]
  - Gallbladder disorder [Unknown]
  - Pharyngitis streptococcal [Unknown]
  - Weight decreased [Unknown]
  - Taste disorder [Unknown]
  - Sensation of foreign body [Unknown]
  - Asthenia [Unknown]
  - COVID-19 [Unknown]
  - Oesophageal dilatation [Unknown]
  - Helicobacter infection [Unknown]
  - Asthenia [Unknown]
  - Pharyngeal stenosis [Unknown]
  - Vomiting [Unknown]
